FAERS Safety Report 8872547 (Version 1)
Quarter: 2012Q4

REPORT INFORMATION
  Report Type: Report from Study
  Country: GB (occurrence: GB)
  Receive Date: 20121030
  Receipt Date: 20121030
  Transmission Date: 20130627
  Serious: Yes (Other)
  Sender: FDA-Public Use
  Company Number: GB-ROCHE-1146882

PATIENT
  Age: 53 Year
  Sex: Male
  Weight: 85 kg

DRUGS (8)
  1. RIBAVIRIN [Suspect]
     Indication: HEPATITIS C
     Route: 048
     Dates: start: 20110830
  2. PEG-INTERFERON ALFA 2A [Suspect]
     Indication: HEPATITIS C
     Route: 058
     Dates: start: 20110830
  3. TELAPREVIR [Suspect]
     Indication: HEPATITIS C
     Route: 048
     Dates: start: 20110830, end: 20111118
  4. FLUOXETINE [Concomitant]
     Route: 065
  5. PROPANOLOLI HYDROCHLORIDUM [Concomitant]
  6. COD LIVER OIL [Concomitant]
     Route: 048
  7. ZINC [Concomitant]
     Route: 048
  8. CYCLIZINE [Concomitant]
     Route: 065
     Dates: start: 20110914

REACTIONS (2)
  - Drug eruption [Recovered/Resolved]
  - Face oedema [Recovered/Resolved]
